FAERS Safety Report 23634197 (Version 1)
Quarter: 2024Q1

REPORT INFORMATION
  Report Type: Spontaneous
  Country: CA (occurrence: CA)
  Receive Date: 20240314
  Receipt Date: 20240314
  Transmission Date: 20240410
  Serious: Yes (Other)
  Sender: FDA-Public Use
  Company Number: CA-009507513-2403CAN004666

PATIENT
  Age: 76 Year
  Sex: Male

DRUGS (4)
  1. KEYTRUDA [Suspect]
     Active Substance: PEMBROLIZUMAB
     Indication: Oesophageal carcinoma
     Dosage: 200.0 MILLIGRAM, 1 EVERY 21 DAYS
     Route: 065
  2. CARBOPLATIN [Suspect]
     Active Substance: CARBOPLATIN
     Indication: Oesophageal carcinoma
     Dosage: DOSAGE FORM: SOLUTION INTRAVENOUS
     Route: 065
  3. CAPECITABINE [Suspect]
     Active Substance: CAPECITABINE
     Indication: Oesophageal carcinoma
     Dosage: 825.0 MILLIGRAM/SQ. METER, 1 EVERY 21 DAYS, DOSAGE FORM: NOT SPECIFIED, THERAPY DURATION 14.0 DAYS
     Route: 065
  4. CISPLATIN [Suspect]
     Active Substance: CISPLATIN
     Indication: Oesophageal carcinoma
     Dosage: 80.0 MILLIGRAM/SQ. METER, 1 EVERY 21 DAYS
     Route: 042

REACTIONS (6)
  - Acute kidney injury [Unknown]
  - Decreased appetite [Unknown]
  - Fatigue [Unknown]
  - Oesophageal haemorrhage [Unknown]
  - Performance status decreased [Unknown]
  - Pulmonary embolism [Unknown]
